FAERS Safety Report 4449721-5 (Version None)
Quarter: 2004Q3

REPORT INFORMATION
  Report Type: 
  Country: None (occurrence: None)
  Receive Date: 20040913
  Receipt Date: 20040913
  Transmission Date: 20050211
  Serious: Yes (Death)
  Sender: FDA-Public Use
  Company Number: None

PATIENT
  Age: 12 Year
  Sex: Male
  Weight: 32 kg

DRUGS (38)
  1. DEFIBROTIDE (25 MG/KG/DAY ONE Q 6 HRS) MNFR: GENTIUM [Suspect]
     Indication: ACUTE LYMPHOCYTIC LEUKAEMIA
     Dosage: 25 MG /KG/DAY ONE Q 6 IV
     Route: 042
     Dates: start: 20040828, end: 20040909
  2. DEFIBROTIDE (25 MG/KG/DAY ONE Q 6 HRS) MNFR: GENTIUM [Suspect]
     Indication: VENOOCCLUSIVE LIVER DISEASE
     Dosage: 25 MG /KG/DAY ONE Q 6 IV
     Route: 042
     Dates: start: 20040828, end: 20040909
  3. CHLORHEXIDINE  GLUCONATE 0.12 % LI [PERIDEX] [Concomitant]
  4. NYSTATIN SUSP [Concomitant]
  5. TPN [Concomitant]
  6. DIPHENHYDRAMINE HCL [Concomitant]
  7. MAGIC MOUTHWASH SUSP [Concomitant]
  8. BACITRACIN [Concomitant]
  9. GELFOAM SIZE 100 SPGE [Concomitant]
  10. ALDACTONE [Concomitant]
  11. RISPERDAL [Concomitant]
  12. URSODIOL [ACTIGALL] [Concomitant]
  13. DOCUSATE [COLACE] [Concomitant]
  14. AMBIEN [Suspect]
  15. HEPARIN [Concomitant]
  16. ERYTHROMYCIN [ILOTYCIN] [Concomitant]
  17. FUROSEMIDE [Concomitant]
  18. INTRALIPID 20% EMUL [Concomitant]
  19. SODIUM CHLORIDE INJ [Concomitant]
  20. MEROPENEM [MERREM[ [Concomitant]
  21. TPN [Concomitant]
  22. ALBUMIN (HUMAN) [Concomitant]
  23. RANITIDINE HCL [ZANTAC] [Concomitant]
  24. DEXTROSE [Concomitant]
  25. DEFIBROTIDE INVESTIGATIONAL [Concomitant]
  26. DEXTROSE 5%-1/3 NS WITH KCL SOLP [Concomitant]
  27. SODIUM CHLORIDE INJ [Concomitant]
  28. CALCIUM CHLORIDE [Concomitant]
  29. HYDROMORPHONE HCL [DILAUDID-HP] [Concomitant]
  30. WATER FOR IRRIGATION SOLN [Concomitant]
  31. NORMOCARB SOLN [Concomitant]
  32. ONDANSETRON HCL [ZOFRAN'] [Concomitant]
  33. HEPARIN LOCK FLUSH SYRG10 [Concomitant]
  34. POTASSIUM CHLORIDE MINIBAG [Concomitant]
  35. LACI-LUBE [Concomitant]
  36. THROMBIN KIT [Concomitant]
  37. HYDROXYZINE HCL [ATARAX] [Concomitant]
  38. METOCLOPRAMIDE HCL [REGLAN[ [Concomitant]

REACTIONS (6)
  - CARDIAC ARREST [None]
  - DIALYSIS [None]
  - HEPATIC FUNCTION ABNORMAL [None]
  - PANCYTOPENIA [None]
  - RENAL FAILURE [None]
  - RESPIRATORY DISTRESS [None]
